FAERS Safety Report 16561197 (Version 1)
Quarter: 2019Q3

REPORT INFORMATION
  Report Type: Spontaneous
  Country: US (occurrence: US)
  Receive Date: 20190711
  Receipt Date: 20190711
  Transmission Date: 20191004
  Serious: Yes (Hospitalization, Other)
  Sender: FDA-Public Use
  Company Number: US-PFIZER INC-2019237184

PATIENT
  Age: 82 Year
  Sex: Male
  Weight: 58.96 kg

DRUGS (2)
  1. REVATIO [Suspect]
     Active Substance: SILDENAFIL CITRATE
     Indication: PULMONARY HYPERTENSION
     Dosage: UNK, 3X/DAY (TAKE 1/2 TABLET BY MOUTH THREE TIMES DAILY)
     Route: 048
  2. REVATIO [Suspect]
     Active Substance: SILDENAFIL CITRATE
     Dosage: 10 MG, 3X/DAY (20 MG TABLET, TAKE 1/2 TABLET, 10 MG 3 TIMES A DAY)
     Dates: start: 20190522, end: 20190601

REACTIONS (3)
  - Ulcer haemorrhage [Unknown]
  - Hypotension [Unknown]
  - Blood loss anaemia [Unknown]
